FAERS Safety Report 9797580 (Version 2)
Quarter: 2014Q1

REPORT INFORMATION
  Report Type: Spontaneous
  Country: US (occurrence: US)
  Receive Date: 20140106
  Receipt Date: 20140212
  Transmission Date: 20141002
  Serious: No
  Sender: FDA-Public Use
  Company Number: US-009507513-1401USA001077

PATIENT
  Age: 24 Year
  Sex: Female
  Weight: 52.61 kg

DRUGS (2)
  1. NEXPLANON [Suspect]
     Indication: CONTRACEPTION
     Dosage: 68MG PER 3 YEAR IMPLANT
     Route: 058
     Dates: start: 20131216
  2. IRON (UNSPECIFIED) (+) MINERALS (UNSPECIFIED) (+) VITAMINS (UNSPECIFIE [Concomitant]
     Dosage: 1 TABLET DAILY
     Route: 048
     Dates: start: 20131011

REACTIONS (3)
  - Wound infection [Recovered/Resolved]
  - Implant site inflammation [Recovered/Resolved]
  - Implant site erythema [Recovered/Resolved]
